FAERS Safety Report 6880811-3 (Version None)
Quarter: 2010Q2

REPORT INFORMATION
  Report Type: 
  Country: None (occurrence: None)
  Receive Date: 20100630
  Receipt Date: 20090515
  Transmission Date: 20101027
  Serious: Yes (Other)
  Sender: FDA-Public Use
  Company Number: 2009214183

PATIENT
  Age: 50 Year
  Sex: Male
  Weight: 63.5 kg

DRUGS (1)
  1. ZITHROMAX [Suspect]
     Indication: INFLUENZA LIKE ILLNESS
     Dates: start: 20090430, end: 20090502

REACTIONS (3)
  - DEAFNESS [None]
  - INFECTION [None]
  - TINNITUS [None]
